FAERS Safety Report 17428071 (Version 1)
Quarter: 2020Q1

REPORT INFORMATION
  Report Type: Spontaneous
  Country: US (occurrence: US)
  Receive Date: 20200218
  Receipt Date: 20200218
  Transmission Date: 20200409
  Serious: Yes (Hospitalization)
  Sender: FDA-Public Use
  Company Number: US-SA-2019SA343410

PATIENT
  Age: 33 Year
  Sex: Male

DRUGS (1)
  1. DUPILUMAB [Suspect]
     Active Substance: DUPILUMAB
     Indication: BRONCHOPULMONARY ASPERGILLOSIS ALLERGIC

REACTIONS (4)
  - Eosinophilia [Recovering/Resolving]
  - Off label use [Recovering/Resolving]
  - Asthma [Recovering/Resolving]
  - Condition aggravated [Recovering/Resolving]
